FAERS Safety Report 9549952 (Version 2)
Quarter: 2013Q3

REPORT INFORMATION
  Report Type: Report from Study
  Country: CA (occurrence: CA)
  Receive Date: 20130924
  Receipt Date: 20130924
  Transmission Date: 20140515
  Serious: Yes (Other)
  Sender: FDA-Public Use
  Company Number: CA-ABBVIE-13P-028-1104416-00

PATIENT
  Sex: Female
  Weight: 64 kg

DRUGS (3)
  1. KALETRA 200/50 [Suspect]
     Indication: ANTIRETROVIRAL THERAPY
     Route: 048
     Dates: start: 2012
  2. COMBIVIR [Concomitant]
     Indication: HIV INFECTION
     Dosage: 150/300MG
     Route: 048
  3. MATERNA [Concomitant]
     Indication: VITAMIN SUPPLEMENTATION
     Route: 048

REACTIONS (1)
  - Blighted ovum [Unknown]
